FAERS Safety Report 4824615-1 (Version None)
Quarter: 2005Q4

REPORT INFORMATION
  Report Type: 
  Country: None (occurrence: None)
  Receive Date: 20051108
  Receipt Date: 20051021
  Transmission Date: 20060501
  Serious: No
  Sender: FDA-Public Use
  Company Number: GBS050918547

PATIENT
  Age: 6 Year
  Sex: Male
  Weight: 19 kg

DRUGS (2)
  1. STRATTERA [Suspect]
     Indication: ATTENTION DEFICIT/HYPERACTIVITY DISORDER
     Dosage: 25 MG
     Dates: start: 20050221
  2. METHYLPHENIDATE HCL [Concomitant]

REACTIONS (11)
  - ABDOMINAL PAIN UPPER [None]
  - CONSTIPATION [None]
  - DECREASED APPETITE [None]
  - DRUG EFFECT DECREASED [None]
  - EOSINOPHIL COUNT INCREASED [None]
  - LYMPHOCYTE COUNT INCREASED [None]
  - MUSCULOSKELETAL STIFFNESS [None]
  - POLLAKIURIA [None]
  - PRURITUS [None]
  - SCLERAL DISCOLOURATION [None]
  - SOMNOLENCE [None]
